FAERS Safety Report 7309593-8 (Version None)
Quarter: 2011Q1

REPORT INFORMATION
  Report Type: 
  Country: None (occurrence: None)
  Receive Date: 20110223
  Receipt Date: 20110210
  Transmission Date: 20110831
  Serious: Yes (Hospitalization)
  Sender: FDA-Public Use
  Company Number: FR-BAYER-2011-013942

PATIENT
  Sex: Male

DRUGS (5)
  1. CLAFORAN [Suspect]
     Dosage: 1 G, TID
     Route: 042
     Dates: start: 20101208, end: 20101214
  2. GENTAMICIN [Suspect]
     Dosage: 220 MG, BID
     Route: 042
     Dates: start: 20101209, end: 20101224
  3. CIFLOX [Suspect]
     Dosage: 200 MG, BID
     Route: 042
     Dates: start: 20101208, end: 20101209
  4. FLAGYL [Suspect]
     Dosage: 500 MG, TID
     Route: 048
     Dates: start: 20101209, end: 20101222
  5. VANCOMYCIN [Suspect]
     Dosage: 1 G, BID
     Route: 042
     Dates: start: 20101209, end: 20101224

REACTIONS (1)
  - PYODERMA GANGRENOSUM [None]
